FAERS Safety Report 4549067-0 (Version None)
Quarter: 2004Q4

REPORT INFORMATION
  Report Type: 
  Country: None (occurrence: None)
  Receive Date: 20041227
  Receipt Date: 20041012
  Transmission Date: 20050328
  Serious: No
  Sender: FDA-Public Use
  Company Number: 04P-163-0260504-00

PATIENT
  Age: 78 Year
  Sex: Female
  Weight: 59.4212 kg

DRUGS (11)
  1. HUMIRA [Suspect]
     Indication: RHEUMATOID ARTHRITIS
     Dosage: SEE IMAGE
     Route: 058
     Dates: start: 20040303, end: 20040428
  2. HUMIRA [Suspect]
     Indication: RHEUMATOID ARTHRITIS
     Dosage: SEE IMAGE
     Route: 058
     Dates: start: 20040511
  3. METHOTREXATE [Concomitant]
  4. PREDNISONE [Concomitant]
  5. METFORMIN HCL [Concomitant]
  6. ATORVASTATIN [Concomitant]
  7. LISINOPRIL [Concomitant]
  8. FOLIC ACID [Concomitant]
  9. ESOMEPRAZOLE [Concomitant]
  10. MULTIVITAMIN [Concomitant]
  11. CALCIUM GLUCONATE [Concomitant]

REACTIONS (2)
  - DRUG EFFECT DECREASED [None]
  - THROAT IRRITATION [None]
